FAERS Safety Report 10050124 (Version 3)
Quarter: 2014Q2

REPORT INFORMATION
  Report Type: Spontaneous
  Country: CN (occurrence: CN)
  Receive Date: 20140401
  Receipt Date: 20140602
  Transmission Date: 20141212
  Serious: Yes (Other)
  Sender: FDA-Public Use
  Company Number: CN-SA-2014SA035525

PATIENT
  Age: 74 Year
  Sex: Female
  Weight: 80 kg

DRUGS (4)
  1. PLAVIX [Suspect]
     Indication: STENT PLACEMENT
     Route: 048
     Dates: start: 201403
  2. ASPIRIN [Concomitant]
     Indication: HYPERTENSION
     Route: 048
     Dates: start: 201306
  3. NEXIUM [Concomitant]
     Indication: GASTRIC DISORDER
     Route: 048
     Dates: start: 201306
  4. ISOSORBIDE DINITRATE [Concomitant]
     Indication: CORONARY ARTERY DISEASE
     Route: 048

REACTIONS (3)
  - Chest discomfort [Not Recovered/Not Resolved]
  - Asphyxia [Not Recovered/Not Resolved]
  - Suspected counterfeit product [Unknown]
